FAERS Safety Report 14528633 (Version 2)
Quarter: 2018Q1

REPORT INFORMATION
  Report Type: Spontaneous
  Country: MX (occurrence: MX)
  Receive Date: 20180214
  Receipt Date: 20180304
  Transmission Date: 20180509
  Serious: Yes (Other)
  Sender: FDA-Public Use
  Company Number: MX-ACCORD-063213

PATIENT
  Age: 69 Year
  Sex: Male

DRUGS (7)
  1. LOSARTAN. [Concomitant]
     Active Substance: LOSARTAN
  2. METHOTREXATE. [Suspect]
     Active Substance: METHOTREXATE
     Indication: RHEUMATOID ARTHRITIS
     Dates: start: 200601, end: 201207
  3. INDOMETACIN [Concomitant]
     Active Substance: INDOMETHACIN
  4. HYDROXYCHLOROQUINE [Concomitant]
     Active Substance: HYDROXYCHLOROQUINE
  5. GABAPENTIN. [Concomitant]
     Active Substance: GABAPENTIN
  6. METOPROLOL. [Concomitant]
     Active Substance: METOPROLOL
  7. METFORMIN [Concomitant]
     Active Substance: METFORMIN HYDROCHLORIDE

REACTIONS (8)
  - Pallor [Recovered/Resolved]
  - Lymphocyte count decreased [Recovered/Resolved]
  - Oral candidiasis [Recovered/Resolved]
  - Post inflammatory pigmentation change [Recovered/Resolved]
  - Cheilitis [Recovered/Resolved]
  - Mucosal inflammation [Recovered/Resolved]
  - Platelet count decreased [Recovered/Resolved]
  - Mucosal atrophy [Recovered/Resolved]

NARRATIVE: CASE EVENT DATE: 2012
